FAERS Safety Report 13355260 (Version 1)
Quarter: 2017Q1

REPORT INFORMATION
  Report Type: Spontaneous
  Country: US (occurrence: US)
  Receive Date: 20170321
  Receipt Date: 20170321
  Transmission Date: 20170429
  Serious: No
  Sender: FDA-Public Use
  Company Number: US-HORIZON-NVC-PEN-0113-2017

PATIENT
  Age: 88 Year
  Sex: Female

DRUGS (1)
  1. PENNSAID [Suspect]
     Active Substance: DICLOFENAC SODIUM
     Indication: BACK PAIN
     Dosage: 40 DROPS TOPICAL TWICE DAILY
     Route: 061

REACTIONS (1)
  - Off label use [Unknown]
